FAERS Safety Report 16035556 (Version 1)
Quarter: 2019Q1

REPORT INFORMATION
  Report Type: Spontaneous
  Country: DK (occurrence: DK)
  Receive Date: 20190305
  Receipt Date: 20190305
  Transmission Date: 20190418
  Serious: Yes (Death, Life-Threatening, Hospitalization)
  Sender: FDA-Public Use
  Company Number: DK-BAYER-2019-038823

PATIENT
  Age: 70 Year
  Sex: Male

DRUGS (10)
  1. THIAMINE. [Concomitant]
     Active Substance: THIAMINE
     Indication: PROPHYLAXIS
     Dosage: 300 MG, QD
     Route: 048
     Dates: start: 20161202
  2. APOVIT B COMBIN [Concomitant]
     Indication: VITAMIN SUPPLEMENTATION
     Dosage: 2 DF, QD
     Route: 048
     Dates: start: 20161202
  3. TERBUTALINE [Concomitant]
     Active Substance: TERBUTALINE
     Indication: BRONCHOSPASM
     Dosage: 0.5 MG/DOSE; AS NECESSARY
     Route: 055
     Dates: start: 20180614
  4. PANTOPRAZOLE SODIUM SESQUIHYDRATE [Concomitant]
     Active Substance: PANTOPRAZOLE SODIUM
     Indication: GASTRIC ULCER HELICOBACTER
     Dosage: 80 MG, QD
     Route: 048
     Dates: start: 20170808
  5. SPIRONOLACTONE. [Concomitant]
     Active Substance: SPIRONOLACTONE
     Indication: DIURETIC THERAPY
     Dosage: 50 MG, QD
     Route: 048
     Dates: start: 20170810
  6. TRAMADOL. [Concomitant]
     Active Substance: TRAMADOL
     Indication: PAIN
     Dosage: 1 TABLET MAX 5 TIMES PR DAY
     Route: 048
  7. PARACETAMOL [Concomitant]
     Active Substance: ACETAMINOPHEN
     Indication: PAIN
     Dosage: 1000 MG MAX 4 TIMES PR DAY
     Route: 048
  8. DOMPERIDONE [Concomitant]
     Active Substance: DOMPERIDONE
     Indication: NAUSEA
     Dosage: 10 MG, QD WHEN NEEDED
     Route: 048
     Dates: start: 20180503
  9. NEXAVAR [Suspect]
     Active Substance: SORAFENIB
     Indication: HEPATOCELLULAR CARCINOMA
     Dosage: 200 MG, BID
     Route: 048
     Dates: start: 20180502, end: 20190206
  10. BETAMETHASONE. [Concomitant]
     Active Substance: BETAMETHASONE
     Indication: WOUND TREATMENT
     Dosage: 1 MG/G. DOSE: 1 APPLICATION WHEN NEEDED, MAX 1 TIME PR DAY.
     Route: 003
     Dates: start: 20181121

REACTIONS (7)
  - Dizziness [Fatal]
  - Thrombocytopenia [Fatal]
  - Haemorrhage intracranial [Fatal]
  - Malaise [Fatal]
  - Intracranial mass [Fatal]
  - Headache [Fatal]
  - Listless [Fatal]

NARRATIVE: CASE EVENT DATE: 2018
